FAERS Safety Report 7807298-8 (Version None)
Quarter: 2011Q4

REPORT INFORMATION
  Report Type: 
  Country: None (occurrence: None)
  Receive Date: 20111011
  Receipt Date: 20110930
  Transmission Date: 20120403
  Serious: Yes (Other)
  Sender: FDA-Public Use
  Company Number: US-BRISTOL-MYERS SQUIBB COMPANY-16121071

PATIENT
  Age: 48 Year
  Sex: Male
  Weight: 100 kg

DRUGS (7)
  1. IXEMPRA KIT [Suspect]
     Indication: NEOPLASM
     Dosage: LAST DOSE:25AUG11 NO OF COURSE:1 RESTARTED WITH REDUCED DOSE
     Route: 042
     Dates: start: 20110825
  2. LISINOPRIL [Concomitant]
  3. PREGABALIN [Concomitant]
  4. LORAZEPAM [Concomitant]
  5. TORISEL [Suspect]
     Indication: NEOPLASM
     Dosage: LAST DOSE:26AUG11 NO OF COURSE:1 RESTARTED WITH REDUCED DOSE
     Route: 042
     Dates: start: 20110825
  6. OXYCODONE HCL [Concomitant]
  7. NEURONTIN [Concomitant]

REACTIONS (4)
  - HYPOPHOSPHATAEMIA [None]
  - PLATELET COUNT DECREASED [None]
  - NEUTROPHIL COUNT DECREASED [None]
  - WHITE BLOOD CELL COUNT DECREASED [None]
